FAERS Safety Report 22084568 (Version 1)
Quarter: 2023Q1

REPORT INFORMATION
  Report Type: Spontaneous
  Country: US (occurrence: None)
  Receive Date: 20230309
  Receipt Date: 20230309
  Transmission Date: 20230417
  Serious: Yes (Disabling, Other)
  Sender: FDA-Public Use
  Company Number: None

PATIENT
  Age: 35 Year
  Sex: Male
  Weight: 61.65 kg

DRUGS (5)
  1. SYNTHROID [Suspect]
     Active Substance: LEVOTHYROXINE SODIUM
     Indication: Autoimmune thyroiditis
     Dosage: OTHER STRENGTH : MCG;?
     Route: 048
  2. SERTRALINE [Suspect]
     Active Substance: SERTRALINE HYDROCHLORIDE
  3. WELLBUTRIN [Suspect]
     Active Substance: BUPROPION HYDROCHLORIDE
  4. VITAMINS [Concomitant]
     Active Substance: VITAMINS
  5. SYNTHROID [Concomitant]
     Active Substance: LEVOTHYROXINE SODIUM

REACTIONS (18)
  - Hyperhidrosis [None]
  - Fine motor skill dysfunction [None]
  - Feeling abnormal [None]
  - Dizziness [None]
  - Loss of consciousness [None]
  - Diplopia [None]
  - Visual impairment [None]
  - Headache [None]
  - Fatigue [None]
  - Palpitations [None]
  - Pain [None]
  - Chest pain [None]
  - Weight fluctuation [None]
  - Hepatic enzyme increased [None]
  - Lung hyperinflation [None]
  - Hyperglycaemia [None]
  - Vision blurred [None]
  - Fatigue [None]

NARRATIVE: CASE EVENT DATE: 20200328
